FAERS Safety Report 8963985 (Version 2)
Quarter: 2012Q4

REPORT INFORMATION
  Report Type: 
  Country: TR (occurrence: TR)
  Receive Date: 20121213
  Receipt Date: 20121228
  Transmission Date: 20130627
  Serious: Yes (Other)
  Sender: FDA-Public Use
  Company Number: TR-B.I. PHARMACEUTICALS,INC./RIDGEFIELD-2012-AP-01103TK

PATIENT
  Age: 75 Year
  Sex: Male

DRUGS (5)
  1. FLOMAX [Suspect]
     Indication: BENIGN PROSTATIC HYPERPLASIA
  2. BELOC [Concomitant]
  3. DODEX [Concomitant]
  4. BEMIKS [Concomitant]
  5. AVODART [Concomitant]

REACTIONS (5)
  - Plasma cell myeloma [Unknown]
  - Headache [Unknown]
  - Fatigue [Unknown]
  - Abdominal distension [Unknown]
  - Red blood cell sedimentation rate increased [Unknown]
